FAERS Safety Report 21703881 (Version 1)
Quarter: 2022Q4

REPORT INFORMATION
  Report Type: Other
  Country: GB (occurrence: GB)
  Receive Date: 20221209
  Receipt Date: 20221209
  Transmission Date: 20230112
  Serious: Yes (Hospitalization, Other)
  Sender: FDA-Public Use
  Company Number: None

PATIENT
  Age: 65 Year
  Sex: Female

DRUGS (9)
  1. DEXAMETHASONE [Suspect]
     Active Substance: DEXAMETHASONE
     Indication: Plasma cell myeloma
     Dosage: UNK, CYCLICAL
     Route: 065
     Dates: start: 202002
  2. DEXAMETHASONE [Suspect]
     Active Substance: DEXAMETHASONE
     Dosage: UNK, CYCLICAL, 7 CYCLES (VD)
     Route: 065
  3. ALLOPURINOL [Suspect]
     Active Substance: ALLOPURINOL
     Indication: Product used for unknown indication
     Dosage: UNK
     Route: 065
  4. COTRIMOXAZOLE [Suspect]
     Active Substance: SULFAMETHOXAZOLE\TRIMETHOPRIM
     Indication: Product used for unknown indication
     Dosage: UNK
     Route: 065
  5. IXAZOMIB [Suspect]
     Active Substance: IXAZOMIB
     Indication: Plasma cell myeloma
     Dosage: UNK, CYCLICAL
     Route: 065
     Dates: start: 202010
  6. IXAZOMIB [Suspect]
     Active Substance: IXAZOMIB
     Dosage: UNK, CYCLICAL, REINITIATED
     Route: 065
  7. THALIDOMIDE [Suspect]
     Active Substance: THALIDOMIDE
     Indication: Plasma cell myeloma
     Dosage: UNK, CYCLICAL
     Route: 065
     Dates: start: 202002
  8. THALIDOMIDE [Suspect]
     Active Substance: THALIDOMIDE
     Dosage: UNK, RE INITIATED, CYCLE 2
     Route: 065
     Dates: start: 202002
  9. VELCADE [Suspect]
     Active Substance: BORTEZOMIB
     Indication: Plasma cell myeloma
     Dosage: UNK, CYCLICAL, 7 CYCLES (VD)
     Route: 065
     Dates: start: 202002

REACTIONS (6)
  - Constipation [Unknown]
  - Acute abdomen [Unknown]
  - Anaemia [Unknown]
  - Thrombocytopenia [Unknown]
  - Rash maculo-papular [Recovered/Resolved]
  - Therapy partial responder [Unknown]
